FAERS Safety Report 6859670-0 (Version None)
Quarter: 2010Q3

REPORT INFORMATION
  Report Type: 
  Country: None (occurrence: None)
  Receive Date: 20100719
  Receipt Date: 20100708
  Transmission Date: 20110219
  Serious: Yes (Hospitalization)
  Sender: FDA-Public Use
  Company Number: FR-SP-2010-03904

PATIENT
  Sex: Male

DRUGS (1)
  1. IMMUCYST [Suspect]
     Indication: TRANSITIONAL CELL CARCINOMA
     Route: 043
     Dates: start: 20091214, end: 20091214

REACTIONS (4)
  - ARTHRITIS REACTIVE [None]
  - HAEMATURIA [None]
  - PYREXIA [None]
  - SYSTEMIC INFLAMMATORY RESPONSE SYNDROME [None]
